FAERS Safety Report 11571588 (Version 2)
Quarter: 2015Q4

REPORT INFORMATION
  Report Type: Spontaneous
  Country: US (occurrence: US)
  Receive Date: 20150916
  Receipt Date: 20151027
  Transmission Date: 20160304
  Serious: No
  Sender: FDA-Public Use
  Company Number: US-ELI_LILLY_AND_COMPANY-US200909005975

PATIENT
  Age: 58 Year
  Sex: Female
  Weight: 45.35 kg

DRUGS (4)
  1. FORTEO [Suspect]
     Active Substance: TERIPARATIDE
     Dosage: 20 UG, DAILY (1/D)
  2. RHINOCORT AQUA [Concomitant]
     Active Substance: BUDESONIDE
  3. LISINOPRIL. [Concomitant]
     Active Substance: LISINOPRIL
  4. CALCIUM [Concomitant]
     Active Substance: CALCIUM

REACTIONS (4)
  - Depression [Unknown]
  - Muscle spasms [Unknown]
  - Vitamin D decreased [Unknown]
  - Asthenia [Unknown]
